FAERS Safety Report 6126768-4 (Version None)
Quarter: 2009Q1

REPORT INFORMATION
  Report Type: 
  Country: None (occurrence: None)
  Receive Date: 20090320
  Receipt Date: 20090318
  Transmission Date: 20090719
  Serious: Yes (Hospitalization)
  Sender: FDA-Public Use
  Company Number: US-JNJFOC-20090305206

PATIENT
  Age: 15 Year
  Sex: Male
  Weight: 66.23 kg

DRUGS (4)
  1. INVEGA [Suspect]
     Route: 048
  2. INVEGA [Suspect]
     Indication: SCHIZOAFFECTIVE DISORDER
     Route: 048
  3. ABILIFY [Concomitant]
     Indication: SCHIZOAFFECTIVE DISORDER
     Route: 048
  4. DDAVP [Concomitant]
     Indication: ENURESIS

REACTIONS (3)
  - BELLIGERENCE [None]
  - EPISTAXIS [None]
  - THERAPY CESSATION [None]
